FAERS Safety Report 13670921 (Version 1)
Quarter: 2017Q2

REPORT INFORMATION
  Report Type: Spontaneous
  Country: US (occurrence: US)
  Receive Date: 20170620
  Receipt Date: 20170620
  Transmission Date: 20170830
  Serious: No
  Sender: FDA-Public Use
  Company Number: US-ROCHE-1464481

PATIENT
  Sex: Female
  Weight: 68.1 kg

DRUGS (6)
  1. HYDROMORPHONE [Concomitant]
     Active Substance: HYDROMORPHONE
     Indication: PAIN
     Route: 065
     Dates: start: 2014
  2. XELODA [Suspect]
     Active Substance: CAPECITABINE
     Indication: COLON CANCER
     Dosage: 14 DAYS ON AND 7 DAYS OFF
     Route: 048
     Dates: start: 201408
  3. TYLENOL #3 (UNITED STATES) [Concomitant]
     Indication: PAIN
     Dosage: FOR A MONTH AND A HALF
     Route: 065
     Dates: start: 2014, end: 2014
  4. NAPROSYN [Concomitant]
     Active Substance: NAPROXEN
     Indication: PAIN
     Route: 065
  5. NORCO [Concomitant]
     Active Substance: ACETAMINOPHEN\HYDROCODONE BITARTRATE
     Indication: PAIN
     Dosage: FOR 2 WEEKS
     Route: 065
     Dates: start: 2014, end: 2014
  6. XELODA [Suspect]
     Active Substance: CAPECITABINE
     Indication: LUNG NEOPLASM MALIGNANT
     Dosage: 2 PILLS A DAY, 1 IN AM/1 IN PM, 2 WEEKS ON/1 WEEK OFF
     Route: 048
     Dates: start: 20140801

REACTIONS (2)
  - Pain [Not Recovered/Not Resolved]
  - Drug ineffective [Unknown]
